FAERS Safety Report 9753157 (Version 2)
Quarter: 2013Q4

REPORT INFORMATION
  Report Type: Spontaneous
  Country: US (occurrence: US)
  Receive Date: 20131213
  Receipt Date: 20131213
  Transmission Date: 20140711
  Serious: No
  Sender: FDA-Public Use
  Company Number: US-GILEAD-2010-0026438

PATIENT
  Sex: Female
  Weight: 75.75 kg

DRUGS (23)
  1. LETAIRIS [Suspect]
     Indication: PULMONARY ARTERIAL HYPERTENSION
     Route: 048
     Dates: start: 20091117
  2. OXYGEN [Concomitant]
     Dates: start: 20041107
  3. VENTAVIS [Concomitant]
     Dates: start: 20091113
  4. LASIX [Concomitant]
     Dates: start: 20061109
  5. TAMBOCOR [Concomitant]
     Dates: start: 20090226
  6. KETOCONAZOLE [Concomitant]
     Dates: start: 20090122
  7. PRED [Concomitant]
     Dates: start: 20090521
  8. PREDNISONE [Concomitant]
     Dates: start: 20091113
  9. BROVANA [Concomitant]
     Dates: start: 20090625
  10. VFEND [Concomitant]
     Dates: start: 20091124
  11. REGLAN [Concomitant]
  12. BIAXIN [Concomitant]
     Dates: start: 20091113
  13. KAPIDEX [Concomitant]
     Dates: start: 20091113
  14. ZYFLO [Concomitant]
     Dates: start: 20090416
  15. SALINE NASAL SPRAY [Concomitant]
     Dates: start: 20091218
  16. FLONASE [Concomitant]
     Dates: start: 20070823
  17. ALLEGRA [Concomitant]
     Dates: start: 20070823
  18. SPIRIVA [Concomitant]
     Dates: start: 20090416
  19. CARAFATE [Concomitant]
     Dates: start: 20091113
  20. CRESTOR [Concomitant]
     Dates: start: 20091207
  21. ACIDOPHOLUS [Concomitant]
     Dates: start: 20090122
  22. POTASSIUM CHLORIDE [Concomitant]
     Dates: start: 20070607
  23. CALTRATE PLUS VITAMIN D WITH MINERALS [Concomitant]
     Dates: start: 20070329

REACTIONS (4)
  - Blood pressure decreased [Unknown]
  - Oedema peripheral [Unknown]
  - Bronchitis [Unknown]
  - Tinnitus [Unknown]
